FAERS Safety Report 18559443 (Version 2)
Quarter: 2020Q4

REPORT INFORMATION
  Report Type: Spontaneous
  Country: IT (occurrence: IT)
  Receive Date: 20201130
  Receipt Date: 20201215
  Transmission Date: 20210114
  Serious: Yes (Hospitalization)
  Sender: FDA-Public Use
  Company Number: NVSC2020IT313238

PATIENT
  Age: 82 Year
  Sex: Female

DRUGS (2)
  1. TOLEP [Suspect]
     Active Substance: OXCARBAZEPINE
     Indication: APHASIA
     Dosage: 600 MG, QD
     Route: 048
     Dates: start: 20200323, end: 20200328
  2. XARELTO [Concomitant]
     Active Substance: RIVAROXABAN
     Indication: ATRIAL FIBRILLATION
     Dosage: UNK
     Route: 048
     Dates: start: 20190913

REACTIONS (4)
  - Dyspnoea [Recovering/Resolving]
  - Hypertension [Recovering/Resolving]
  - Hyponatraemia [Recovering/Resolving]
  - Disorientation [Recovering/Resolving]

NARRATIVE: CASE EVENT DATE: 20200328
